FAERS Safety Report 23688649 (Version 1)
Quarter: 2024Q1

REPORT INFORMATION
  Report Type: Spontaneous
  Country: US (occurrence: US)
  Receive Date: 20240329
  Receipt Date: 20240329
  Transmission Date: 20240409
  Serious: No
  Sender: FDA-Public Use
  Company Number: US-INSUD PHARMA-2403US02340

PATIENT

DRUGS (1)
  1. LORYNA [Suspect]
     Active Substance: DROSPIRENONE\ETHINYL ESTRADIOL
     Indication: Oral contraception
     Dosage: UNK
     Route: 048

REACTIONS (3)
  - Erythema [Unknown]
  - Rash [Unknown]
  - Pruritus [Unknown]
